FAERS Safety Report 4384252-2 (Version None)
Quarter: 2004Q2

REPORT INFORMATION
  Report Type: 
  Country: None (occurrence: None)
  Receive Date: 20040624
  Receipt Date: 20040528
  Transmission Date: 20050107
  Serious: Yes (Other)
  Sender: FDA-Public Use
  Company Number: US-MERCK-0406USA00006

PATIENT
  Age: 59 Year
  Sex: Female

DRUGS (2)
  1. FOSAMAX [Suspect]
     Indication: OSTEOPOROSIS
     Route: 048
     Dates: start: 20010101, end: 20030601
  2. FOSAMAX [Suspect]
     Route: 048

REACTIONS (9)
  - COUGH [None]
  - EATING DISORDER [None]
  - HAEMOPTYSIS [None]
  - LARYNGITIS [None]
  - PHARYNGITIS [None]
  - PRODUCTIVE COUGH [None]
  - RETCHING [None]
  - SPEECH DISORDER [None]
  - VOCAL CORD DISORDER [None]
